FAERS Safety Report 9828538 (Version 2)
Quarter: 2014Q1

REPORT INFORMATION
  Report Type: Report from Study
  Country: US (occurrence: US)
  Receive Date: 20140117
  Receipt Date: 20140128
  Transmission Date: 20141002
  Serious: Yes (Life-Threatening, Hospitalization)
  Sender: FDA-Public Use
  Company Number: US-ABBVIE-14P-163-1190442-00

PATIENT
  Age: 49 Year
  Sex: Female
  Weight: 77.18 kg

DRUGS (14)
  1. HUMIRA [Suspect]
     Indication: CROHN^S DISEASE
     Dates: start: 2010, end: 2010
  2. HUMIRA [Suspect]
  3. HUMIRA [Suspect]
  4. HUMIRA [Suspect]
     Dates: end: 201303
  5. REMICADE [Suspect]
     Indication: CROHN^S DISEASE
     Dates: start: 201303, end: 201304
  6. WELLBUTRIN [Concomitant]
     Indication: DEPRESSION
  7. LEXAPRO [Concomitant]
     Indication: DEPRESSION
  8. BUSPAR [Concomitant]
     Indication: ANXIETY
  9. TRAZODONE [Concomitant]
     Indication: INSOMNIA
  10. TRAZODONE [Concomitant]
     Indication: DEPRESSION
  11. NARATRIPTAN [Concomitant]
     Indication: MIGRAINE
  12. TOPAMAX [Concomitant]
     Indication: MIGRAINE
  13. PROAIR [Concomitant]
     Indication: ASTHMA
  14. CORTISONE [Concomitant]
     Indication: BURSITIS
     Dosage: INTO HIPS

REACTIONS (4)
  - Respiratory arrest [Recovered/Resolved]
  - Swelling face [Recovered/Resolved]
  - Anaphylactic reaction [Recovered/Resolved]
  - Crohn^s disease [Not Recovered/Not Resolved]
